FAERS Safety Report 20143153 (Version 14)
Quarter: 2023Q2

REPORT INFORMATION
  Report Type: Spontaneous
  Country: CA (occurrence: CA)
  Receive Date: 20211203
  Receipt Date: 20230513
  Transmission Date: 20230722
  Serious: Yes (Hospitalization, Other)
  Sender: FDA-Public Use
  Company Number: CA-CELLTRION INC.-2021CA011532

PATIENT

DRUGS (14)
  1. INFLECTRA [Suspect]
     Active Substance: INFLIXIMAB-DYYB
     Indication: Rheumatoid arthritis
     Dosage: 300 MG, EVERY 6 WEEKS
     Route: 042
     Dates: start: 20191016
  2. INFLECTRA [Suspect]
     Active Substance: INFLIXIMAB-DYYB
     Dosage: 300 MG, EVERY 6 WEEKS
     Route: 042
     Dates: start: 20210519
  3. INFLECTRA [Suspect]
     Active Substance: INFLIXIMAB-DYYB
     Dosage: 300 MG, EVERY 6 WEEKS
     Route: 042
     Dates: start: 20210630
  4. INFLECTRA [Suspect]
     Active Substance: INFLIXIMAB-DYYB
     Dosage: 300 MG, EVERY 6 WEEKS
     Route: 042
     Dates: start: 20210811
  5. INFLECTRA [Suspect]
     Active Substance: INFLIXIMAB-DYYB
     Dosage: 300 MG, EVERY 6 WEEKS
     Route: 042
     Dates: start: 20210922
  6. INFLECTRA [Suspect]
     Active Substance: INFLIXIMAB-DYYB
     Dosage: 300 MG, EVERY 6 WEEKS
     Route: 042
     Dates: start: 20211124
  7. INFLECTRA [Suspect]
     Active Substance: INFLIXIMAB-DYYB
     Dosage: 300 MG, EVERY 6 WEEKS
     Route: 042
     Dates: start: 20220114
  8. INFLECTRA [Suspect]
     Active Substance: INFLIXIMAB-DYYB
     Dosage: 300 MG, EVERY 6 WEEKS
     Route: 042
     Dates: start: 20220216
  9. INFLECTRA [Suspect]
     Active Substance: INFLIXIMAB-DYYB
     Dosage: 300 MG, EVERY 6 WEEKS
     Route: 042
     Dates: start: 20220511
  10. INFLECTRA [Suspect]
     Active Substance: INFLIXIMAB-DYYB
     Dosage: 300 MG, EVERY 6 WEEKS
     Route: 042
     Dates: start: 20220622
  11. INFLECTRA [Suspect]
     Active Substance: INFLIXIMAB-DYYB
     Dosage: 300 MG, EVERY 6 WEEKS
     Route: 042
     Dates: start: 20220818
  12. INFLECTRA [Suspect]
     Active Substance: INFLIXIMAB-DYYB
     Dosage: 300 MG, EVERY 6 WEEKS
     Route: 042
     Dates: start: 20230322
  13. INFLECTRA [Suspect]
     Active Substance: INFLIXIMAB-DYYB
     Dosage: 300MG, EVERY 6 WEEKS
     Route: 042
     Dates: start: 20230503
  14. METHOTREXATE [Concomitant]
     Active Substance: METHOTREXATE
     Dosage: UNK

REACTIONS (13)
  - Platelet count decreased [Not Recovered/Not Resolved]
  - Knee deformity [Recovering/Resolving]
  - Impaired quality of life [Not Recovered/Not Resolved]
  - Blood disorder [Not Recovered/Not Resolved]
  - Exposure to SARS-CoV-2 [Unknown]
  - Gait disturbance [Not Recovered/Not Resolved]
  - Pain [Not Recovered/Not Resolved]
  - Rehabilitation therapy [Unknown]
  - Musculoskeletal stiffness [Not Recovered/Not Resolved]
  - Rash [Not Recovered/Not Resolved]
  - COVID-19 [Recovered/Resolved]
  - Off label use [Unknown]
  - Inappropriate schedule of product administration [Unknown]

NARRATIVE: CASE EVENT DATE: 20191016
